FAERS Safety Report 5278350-9 (Version None)
Quarter: 2007Q1

REPORT INFORMATION
  Report Type: 
  Country: None (occurrence: None)
  Receive Date: 20070322
  Receipt Date: 20070313
  Transmission Date: 20070707
  Serious: Yes (Other)
  Sender: FDA-Public Use
  Company Number: WAES 0703USA02407

PATIENT
  Sex: 0

DRUGS (2)
  1. TIMOPTIC [Suspect]
     Dosage: OPHT
     Route: 047
  2. TRAVATAN [Suspect]
     Dosage: OPHT
     Route: 047

REACTIONS (1)
  - HALO VISION [None]
